FAERS Safety Report 4720555-7 (Version None)
Quarter: 2005Q3

REPORT INFORMATION
  Report Type: 
  Country: None (occurrence: None)
  Receive Date: 20050719
  Receipt Date: 20050630
  Transmission Date: 20060218
  Serious: Yes (Death, Other)
  Sender: FDA-Public Use
  Company Number: USA0506101742

PATIENT
  Sex: Male

DRUGS (2)
  1. XIGRIS [Suspect]
     Indication: SEPSIS
  2. HEPARIN [Concomitant]

REACTIONS (2)
  - CONTRAINDICATION TO MEDICAL TREATMENT [None]
  - DRUG ADMINISTRATION ERROR [None]
